FAERS Safety Report 7584011-3 (Version None)
Quarter: 2011Q2

REPORT INFORMATION
  Report Type: 
  Country: None (occurrence: None)
  Receive Date: 20110630
  Receipt Date: 20110209
  Transmission Date: 20111010
  Serious: Yes (Disabling, Other)
  Sender: FDA-Public Use
  Company Number: NO-JNJFOC-20110105365

PATIENT
  Sex: Male
  Weight: 72 kg

DRUGS (7)
  1. AZATHIOPRINE SODIUM [Suspect]
     Indication: CROHN'S DISEASE
     Dates: start: 20090905
  2. REMICADE [Suspect]
     Indication: CROHN'S DISEASE
     Route: 042
     Dates: start: 20090421
  3. RAMIPRIL [Concomitant]
     Indication: HYPERTENSION
     Route: 048
  4. PRAVACHOL [Concomitant]
  5. METOPROLOL TARTRATE [Concomitant]
     Indication: ATRIAL FIBRILLATION
     Route: 065
  6. REMICADE [Suspect]
     Dosage: 300-500 MG
     Route: 042
     Dates: start: 20101012
  7. WARFARIN SODIUM [Concomitant]
     Indication: ATRIAL FIBRILLATION
     Route: 048

REACTIONS (2)
  - ATRIAL FIBRILLATION [None]
  - INTERSTITIAL LUNG DISEASE [None]
